FAERS Safety Report 13885491 (Version 1)
Quarter: 2017Q3

REPORT INFORMATION
  Report Type: Spontaneous
  Country: FR (occurrence: FR)
  Receive Date: 20170821
  Receipt Date: 20170821
  Transmission Date: 20171127
  Serious: Yes (Hospitalization)
  Sender: FDA-Public Use
  Company Number: FR-AKORN PHARMACEUTICALS-2017AKN01001

PATIENT
  Age: 67 Year
  Sex: Female

DRUGS (11)
  1. NICARDIPINE [Suspect]
     Active Substance: NICARDIPINE
     Indication: HYPERTENSION
     Dosage: 50 MG, 2X/DAY
     Route: 065
  2. IRBESARTAN. [Concomitant]
     Active Substance: IRBESARTAN
     Dosage: 300 MG, 1X/DAY
     Route: 065
  3. ALPRAZOLAM. [Concomitant]
     Active Substance: ALPRAZOLAM
     Dosage: 0.25 MG, 1X/DAY
     Route: 065
  4. RIFAMPIN. [Suspect]
     Active Substance: RIFAMPIN
     Indication: ARTHRITIS BACTERIAL
     Dosage: 600 MG, 2X/DAY
     Route: 048
  5. ATORVASTATIN [Concomitant]
     Active Substance: ATORVASTATIN
     Dosage: 20 MG, 1X/DAY
     Route: 065
  6. HYDROCHLOROTHIAZIDE. [Concomitant]
     Active Substance: HYDROCHLOROTHIAZIDE
     Dosage: 25 MG, 1X/DAY
     Route: 065
  7. ASPIRIN. [Concomitant]
     Active Substance: ASPIRIN
     Dosage: 75 MG, 1X/DAY
     Route: 065
  8. ESOMEPRAZOLE [Concomitant]
     Active Substance: ESOMEPRAZOLE
     Dosage: 20 MG, 1X/DAY
     Route: 065
  9. TEICOPLANIN [Concomitant]
     Active Substance: TEICOPLANIN
     Dosage: 400 MG, 1X/DAY
     Route: 058
  10. URAPIDIL [Concomitant]
     Active Substance: URAPIDIL
     Dosage: 60 MG, 2X/DAY
     Route: 065
  11. METFORMIN [Concomitant]
     Active Substance: METFORMIN HYDROCHLORIDE
     Dosage: 500 MG, 2X/DAY
     Route: 065

REACTIONS (4)
  - Acute kidney injury [Recovered/Resolved]
  - Status epilepticus [Recovered/Resolved]
  - Posterior reversible encephalopathy syndrome [Recovered/Resolved]
  - Drug interaction [Recovered/Resolved]
